FAERS Safety Report 7948327-0 (Version None)
Quarter: 2011Q4

REPORT INFORMATION
  Report Type: 
  Country: None (occurrence: None)
  Receive Date: 20111123
  Receipt Date: 20111117
  Transmission Date: 20120403
  Serious: Yes (Hospitalization, Other)
  Sender: FDA-Public Use
  Company Number: 1000025488

PATIENT
  Age: 65 Year
  Sex: Female

DRUGS (5)
  1. QUINAPRIL HCL [Suspect]
  2. ESCITALOPRAM OXALATE [Suspect]
  3. VENLAFAXINE [Suspect]
  4. AMITRIPTYLINE HCL [Suspect]
  5. ATENOLOL [Suspect]

REACTIONS (7)
  - CONFUSIONAL STATE [None]
  - MULTIPLE DRUG OVERDOSE [None]
  - HYPOXIC-ISCHAEMIC ENCEPHALOPATHY [None]
  - BALANCE DISORDER [None]
  - PULSELESS ELECTRICAL ACTIVITY [None]
  - HYPOKALAEMIA [None]
  - CARDIAC ARREST [None]
